FAERS Safety Report 6026163-2 (Version None)
Quarter: 2008Q4

REPORT INFORMATION
  Report Type: 
  Country: None (occurrence: None)
  Receive Date: 20081230
  Receipt Date: 20081210
  Transmission Date: 20090506
  Serious: Yes (Hospitalization)
  Sender: FDA-Public Use
  Company Number: DSJ-2008-14817

PATIENT
  Age: 59 Year
  Sex: Female
  Weight: 73.2 kg

DRUGS (12)
  1. OLMESARTAN MEDOXOMIL [Suspect]
     Indication: ESSENTIAL HYPERTENSION
     Dosage: 10 MG (10 MG, 1 IN 1 D), PER ORAL
     Route: 048
     Dates: start: 20060510, end: 20060530
  2. OLMESARTAN MEDOXOMIL [Suspect]
     Indication: ESSENTIAL HYPERTENSION
     Dosage: 10 MG (10 MG, 1 IN 1 D), PER ORAL
     Route: 048
     Dates: start: 20060531, end: 20080212
  3. OLMESARTAN MEDOXOMIL [Suspect]
     Indication: ESSENTIAL HYPERTENSION
     Dosage: 10 MG (10 MG, 1 IN 1 D), PER ORAL
     Route: 048
     Dates: start: 20080213, end: 20080409
  4. ATELEC (CILNIDIPINE) (CILNIDIPINE) [Suspect]
     Dosage: 10 MG (10 MG, 1 IN 1 D), PER ORAL
     Route: 048
     Dates: start: 20071023, end: 20080111
  5. ATELEC (CILNIDIPINE) (CILNIDIPINE) [Suspect]
     Dosage: 10 MG (10 MG, 1 IN 1 D), PER ORAL
     Route: 048
     Dates: start: 20080112
  6. CALBLOCK (AZELNIDIPINE) (AZELNIDIPINE) [Concomitant]
  7. ADALAT CC [Concomitant]
  8. THYRADIN-S (LEVOTHYROXINE SODIUM) (LEVOTHYROXINE SODIUM) [Concomitant]
  9. AMARYL [Concomitant]
  10. BEZATOL SR (BEZAFIBRATE) (BEZAFIBRATE) [Concomitant]
  11. ACTOS [Concomitant]
  12. CRESTOR [Concomitant]

REACTIONS (2)
  - PLATELET COUNT DECREASED [None]
  - PROTEIN URINE PRESENT [None]
